FAERS Safety Report 16061302 (Version 1)
Quarter: 2019Q1

REPORT INFORMATION
  Report Type: Spontaneous
  Country: US (occurrence: US)
  Receive Date: 20190312
  Receipt Date: 20190312
  Transmission Date: 20190418
  Serious: Yes (Hospitalization)
  Sender: FDA-Public Use
  Company Number: US-ROCHE-2249654

PATIENT
  Sex: Female

DRUGS (5)
  1. AVASTIN [Suspect]
     Active Substance: BEVACIZUMAB
     Indication: COLON CANCER METASTATIC
     Route: 042
     Dates: start: 201811
  2. LEUCOVORIN. [Concomitant]
     Active Substance: LEUCOVORIN
     Indication: COLON CANCER METASTATIC
     Route: 065
  3. FLUOROURACIL. [Concomitant]
     Active Substance: FLUOROURACIL
     Indication: COLON CANCER METASTATIC
     Route: 065
  4. FOLINIC ACID [Concomitant]
     Active Substance: LEUCOVORIN
     Indication: COLON CANCER METASTATIC
     Route: 065
  5. OXALIPLATIN. [Concomitant]
     Active Substance: OXALIPLATIN
     Route: 065

REACTIONS (1)
  - Gastrointestinal perforation [Not Recovered/Not Resolved]

NARRATIVE: CASE EVENT DATE: 201901
